FAERS Safety Report 7472851-0 (Version None)
Quarter: 2011Q2

REPORT INFORMATION
  Report Type: 
  Country: None (occurrence: None)
  Receive Date: 20110503
  Receipt Date: 20110127
  Transmission Date: 20111010
  Serious: Yes (Other)
  Sender: FDA-Public Use
  Company Number: DSA_44869_2011

PATIENT
  Sex: Female
  Weight: 72.5755 kg

DRUGS (10)
  1. LISINOPRIL [Concomitant]
  2. WELLBUTRIN XL [Suspect]
     Indication: DEPRESSION
     Dosage: (300 MG QD ORAL) ; (150 MG QD, 150MG (1/2 TABLET) ONCE DAILY ORAL)
     Route: 048
     Dates: start: 20110126
  3. WELLBUTRIN XL [Suspect]
     Indication: DEPRESSION
     Dosage: (300 MG QD ORAL) ; (150 MG QD, 150MG (1/2 TABLET) ONCE DAILY ORAL)
     Route: 048
     Dates: start: 20110123, end: 20110125
  4. HYDROCHLOROTHIAZIDE [Concomitant]
  5. GEMFIBROZIL [Concomitant]
  6. ZOCOR [Concomitant]
  7. ALLOPURINOL [Concomitant]
  8. MULTI-VITAMINS [Concomitant]
  9. VERPAMIL HCL [Concomitant]
  10. PRILOSEC [Concomitant]

REACTIONS (3)
  - WRONG TECHNIQUE IN DRUG USAGE PROCESS [None]
  - HALLUCINATION, AUDITORY [None]
  - DIZZINESS [None]
